FAERS Safety Report 4500673-9 (Version None)
Quarter: 2004Q4

REPORT INFORMATION
  Report Type: 
  Country: None (occurrence: None)
  Receive Date: 20041110
  Receipt Date: 20041103
  Transmission Date: 20050328
  Serious: Yes (Other)
  Sender: FDA-Public Use
  Company Number: 200415323BCC

PATIENT
  Age: 23 Year
  Sex: Female

DRUGS (3)
  1. EXTRA STRENGTH BAYER BACK + BODY PAIN [Suspect]
     Indication: TOOTHACHE
     Dosage: SEE IMAGE
     Route: 048
     Dates: start: 20041031
  2. EXTRA STRENGTH BAYER BACK + BODY PAIN [Suspect]
     Indication: TOOTHACHE
     Dosage: SEE IMAGE
     Route: 048
     Dates: start: 20041101
  3. EXTRA STRENGTH BAYER BACK + BODY PAIN [Suspect]
     Indication: TOOTHACHE
     Dosage: SEE IMAGE
     Route: 048
     Dates: start: 20041102

REACTIONS (2)
  - DEAFNESS [None]
  - TINNITUS [None]
